FAERS Safety Report 6911369-8 (Version None)
Quarter: 2010Q3

REPORT INFORMATION
  Report Type: 
  Country: None (occurrence: None)
  Receive Date: 20100806
  Receipt Date: 20100803
  Transmission Date: 20110219
  Serious: Yes (Life-Threatening, Other)
  Sender: FDA-Public Use
  Company Number: JP-JNJFOC-20100109403

PATIENT
  Sex: Female
  Weight: 45 kg

DRUGS (7)
  1. RISPERDAL CONSTA [Suspect]
     Indication: PRODUCT USED FOR UNKNOWN INDICATION
     Route: 030
  2. RISPERDAL [Suspect]
     Indication: SCHIZOPHRENIA
     Route: 048
  3. GASMOTIN [Concomitant]
     Route: 048
  4. DAI-KENCHU-TO [Concomitant]
     Route: 048
  5. YODEL [Concomitant]
     Route: 048
  6. ROHYPNOL [Concomitant]
     Route: 065
  7. SENNOSIDE [Concomitant]
     Route: 065

REACTIONS (10)
  - ABDOMINAL PAIN [None]
  - ASCITES [None]
  - CARDIAC FAILURE [None]
  - CARDIAC HYPERTROPHY [None]
  - DECREASED APPETITE [None]
  - INAPPROPRIATE SCHEDULE OF DRUG ADMINISTRATION [None]
  - PLEURAL EFFUSION [None]
  - PNEUMONIA [None]
  - PSYCHIATRIC SYMPTOM [None]
  - SUBILEUS [None]
